FAERS Safety Report 11185752 (Version 2)
Quarter: 2015Q2

REPORT INFORMATION
  Report Type: Report from Study
  Country: ES (occurrence: ES)
  Receive Date: 20150612
  Receipt Date: 20150617
  Transmission Date: 20150821
  Serious: Yes (Life-Threatening, Hospitalization, Other)
  Sender: FDA-Public Use
  Company Number: ES-BRISTOL-MYERS SQUIBB COMPANY-BMS-2015-038047

PATIENT
  Age: 47 Year
  Sex: Female
  Weight: 48.8 kg

DRUGS (6)
  1. AMLODIPINE [Concomitant]
     Active Substance: AMLODIPINE BESYLATE
     Indication: PRODUCT USED FOR UNKNOWN INDICATION
     Route: 065
  2. CANDESARTAN [Concomitant]
     Active Substance: CANDESARTAN
     Indication: PRODUCT USED FOR UNKNOWN INDICATION
     Route: 065
  3. NIVOLUMAB [Suspect]
     Active Substance: NIVOLUMAB
     Indication: HEAD AND NECK CANCER
  4. BMS-986016-01 [Suspect]
     Active Substance: INVESTIGATIONAL PRODUCT
     Indication: HEAD AND NECK CANCER
  5. BMS-986016-01 [Suspect]
     Active Substance: INVESTIGATIONAL PRODUCT
     Indication: CERVIX CARCINOMA
     Dosage: 20 MG, Q2WK
     Route: 042
     Dates: start: 20150428
  6. NIVOLUMAB [Suspect]
     Active Substance: NIVOLUMAB
     Indication: CERVIX CARCINOMA
     Dosage: 240 MG, Q2WK
     Route: 042
     Dates: start: 20150428

REACTIONS (1)
  - Ventricular fibrillation [Recovering/Resolving]

NARRATIVE: CASE EVENT DATE: 20150607
